FAERS Safety Report 18951061 (Version 1)
Quarter: 2021Q1

REPORT INFORMATION
  Report Type: Spontaneous
  Country: US (occurrence: US)
  Receive Date: 20210228
  Receipt Date: 20210228
  Transmission Date: 20210420
  Serious: No
  Sender: FDA-Public Use
  Company Number: US-TEVA-2021-US-1884138

PATIENT
  Age: 51 Year
  Sex: Female

DRUGS (1)
  1. COPAXONE [Suspect]
     Active Substance: GLATIRAMER ACETATE
     Dosage: FORM STRENGTH UNKNOWN
     Route: 065

REACTIONS (6)
  - Injection site erythema [Unknown]
  - Injection site warmth [Unknown]
  - Injection site bruising [Unknown]
  - Injection site mass [Unknown]
  - Paraesthesia [Unknown]
  - Hypoaesthesia [Unknown]
